FAERS Safety Report 9307165 (Version 4)
Quarter: 2013Q3

REPORT INFORMATION
  Report Type: Spontaneous
  Country: IT (occurrence: IT)
  Receive Date: 20130524
  Receipt Date: 20130710
  Transmission Date: 20140515
  Serious: Yes (Hospitalization)
  Sender: FDA-Public Use
  Company Number: IT-PFIZER INC-2013159008

PATIENT
  Age: 89 Year
  Sex: Female

DRUGS (5)
  1. XANAX [Suspect]
     Dosage: 1 MG, DAILY
     Route: 048
     Dates: start: 20130101, end: 20130517
  2. XANAX [Suspect]
     Dosage: UNK
     Route: 048
     Dates: start: 20130518
  3. CARDIOASPIRIN [Concomitant]
     Dosage: UNK
  4. TRENTAL [Concomitant]
     Dosage: UNK
  5. EUTIMIL [Concomitant]
     Indication: DEPRESSION
     Dosage: UNK

REACTIONS (4)
  - Haematoma [Recovering/Resolving]
  - Injury [Recovering/Resolving]
  - Malaise [Recovering/Resolving]
  - Fall [Recovering/Resolving]
